FAERS Safety Report 6847494-X (Version None)
Quarter: 2010Q3

REPORT INFORMATION
  Report Type: 
  Country: None (occurrence: None)
  Receive Date: 20100716
  Receipt Date: 20100707
  Transmission Date: 20110219
  Serious: Yes (Hospitalization, Other)
  Sender: FDA-Public Use
  Company Number: MY-PFIZER INC-2009270798

PATIENT
  Age: 62 Year
  Sex: Female
  Weight: 50 kg

DRUGS (6)
  1. SUNITINIB MALATE [Suspect]
     Indication: HEPATIC NEOPLASM MALIGNANT
     Dosage: 37.5 MG, 1X/DAY
     Route: 048
     Dates: start: 20090828, end: 20090916
  2. PROPRANOLOL [Concomitant]
     Indication: VARICES OESOPHAGEAL
     Dosage: 40 MG, 2X/DAY
     Route: 048
     Dates: start: 20080101
  3. FRUSEMIDE [Concomitant]
     Indication: DIURETIC THERAPY
     Dosage: 40 MG, 1X/DAY
     Route: 048
     Dates: start: 20080101
  4. SPIRONOLACTONE [Concomitant]
     Indication: DIURETIC THERAPY
     Dosage: 25 MG, 2X/DAY
     Route: 048
     Dates: start: 20080101
  5. CIPROFLOXACIN [Concomitant]
     Indication: PROTEINURIA
     Dosage: 500 MG, 2X/DAY
     Route: 048
     Dates: start: 20090910, end: 20090912
  6. METOCLOPRAMIDE [Concomitant]
     Indication: VOMITING
     Dosage: 10 MG, 3X/DAY
     Dates: start: 20090917, end: 20090918

REACTIONS (2)
  - LEUKOPENIA [None]
  - RENAL IMPAIRMENT [None]
